FAERS Safety Report 14033499 (Version 1)
Quarter: 2017Q4

REPORT INFORMATION
  Report Type: Spontaneous
  Country: FR (occurrence: FR)
  Receive Date: 20171003
  Receipt Date: 20171003
  Transmission Date: 20180321
  Serious: Yes (Hospitalization)
  Sender: FDA-Public Use
  Company Number: FR-ROCHE-2001194

PATIENT
  Age: 56 Year
  Sex: Male

DRUGS (18)
  1. BACTRIM [Concomitant]
     Active Substance: SULFAMETHOXAZOLE\TRIMETHOPRIM
     Dosage: /2 TAB IN THE MORNING ON MONDAY, WEDNESDAY AND?FRIDAY
     Route: 065
  2. RESIKALI [Concomitant]
     Active Substance: CALCIUM POLYSTYRENE SULFONATE
  3. ROACTEMRA [Suspect]
     Active Substance: TOCILIZUMAB
     Route: 042
     Dates: start: 20170523
  4. ROACTEMRA [Suspect]
     Active Substance: TOCILIZUMAB
     Route: 042
     Dates: start: 20170601
  5. CALCIDOSE VITAMINE D [Concomitant]
     Active Substance: CALCIUM\CHOLECALCIFEROL
     Dosage: 500/400 1 PACKET PER DAY
     Route: 065
  6. ATORVASTATIN [Concomitant]
     Active Substance: ATORVASTATIN
     Dosage: 2 TABS IN THE EVENING
     Route: 065
  7. PARACETAMOL [Concomitant]
     Active Substance: ACETAMINOPHEN
     Dosage: 1?TAB EVERY 6 HR IF PAIN
     Route: 065
  8. ROACTEMRA [Suspect]
     Active Substance: TOCILIZUMAB
     Route: 042
     Dates: start: 20170418
  9. NEBIVOLOL. [Concomitant]
     Active Substance: NEBIVOLOL
     Dosage: 1/2 TAB IN THE EVENING
     Route: 065
  10. PROGRAF [Concomitant]
     Active Substance: TACROLIMUS\TACROLIMUS ANHYDROUS
     Dosage: 8 AND 12 NG/ML
     Route: 065
  11. FOSRENOL [Concomitant]
     Active Substance: LANTHANUM CARBONATE
     Dosage: 2 CAP AT NOON AND IN THE EVENING
     Route: 065
  12. CORTANCYL [Concomitant]
     Active Substance: PREDNISONE
     Dosage: 1 TAB 1/2 IN THE MORNING
     Route: 065
  13. ORACILLINE [Concomitant]
     Active Substance: PENICILLIN V
     Dosage: 1 MILLION UNITS 1 TAB IN THE MORNING
     Route: 065
  14. ISOPHANE INSULIN [Concomitant]
     Active Substance: INSULIN NOS
     Dosage: THE MORNING AND 14 IU AT NOON
     Route: 065
  15. ROACTEMRA [Suspect]
     Active Substance: TOCILIZUMAB
     Indication: IMMUNE TOLERANCE INDUCTION
     Route: 042
     Dates: start: 20170316
  16. MIMPARA [Concomitant]
     Active Substance: CINACALCET HYDROCHLORIDE
     Dosage: 1 TAB IN THE EVENING
     Route: 065
  17. KARDEGIC [Concomitant]
     Active Substance: ASPIRIN DL-LYSINE
     Dosage: 1 PACKET AT NOON
     Route: 065
  18. ATARAX [Concomitant]
     Active Substance: HYDROXYZINE HYDROCHLORIDE
     Dosage: TAB AT BEDTIME IF ANXIETY
     Route: 065

REACTIONS (5)
  - Product use in unapproved indication [Unknown]
  - Off label use [Unknown]
  - Ileal ulcer [Recovered/Resolved with Sequelae]
  - Ileal ulcer [Recovered/Resolved with Sequelae]
  - Gastrointestinal haemorrhage [Recovered/Resolved with Sequelae]

NARRATIVE: CASE EVENT DATE: 201706
